FAERS Safety Report 9751985 (Version 1)
Quarter: 2013Q4

REPORT INFORMATION
  Report Type: Report from Study
  Country: FR (occurrence: FR)
  Receive Date: 20131213
  Receipt Date: 20131213
  Transmission Date: 20140711
  Serious: Yes (Other)
  Sender: FDA-Public Use
  Company Number: FR-ROCHE-1316051

PATIENT
  Sex: 0

DRUGS (1)
  1. VEMURAFENIB [Suspect]
     Indication: METASTATIC MALIGNANT MELANOMA
     Route: 048

REACTIONS (16)
  - Hepatic failure [Unknown]
  - Renal failure [Unknown]
  - Keratoacanthoma [Unknown]
  - Squamous cell carcinoma [Unknown]
  - Fatigue [Unknown]
  - Dermatitis acneiform [Unknown]
  - Cholestasis [Unknown]
  - Rash maculo-papular [Unknown]
  - Arthralgia [Unknown]
  - Pyrexia [Unknown]
  - Alopecia [Unknown]
  - Photosensitivity reaction [Unknown]
  - Benign neoplasm of skin [Unknown]
  - Diarrhoea [Unknown]
  - Electrocardiogram QT prolonged [Unknown]
  - Neutrophilic panniculitis [Unknown]
